FAERS Safety Report 23191662 (Version 3)
Quarter: 2024Q1

REPORT INFORMATION
  Report Type: Spontaneous
  Country: JP (occurrence: JP)
  Receive Date: 20231116
  Receipt Date: 20240116
  Transmission Date: 20240410
  Serious: Yes (Other)
  Sender: FDA-Public Use
  Company Number: JP-002147023-NVSJ2023JP016107

PATIENT
  Age: 81 Year
  Sex: Female

DRUGS (2)
  1. TAFINLAR [Suspect]
     Active Substance: DABRAFENIB MESYLATE
     Indication: Lung neoplasm malignant
     Dosage: UNK
     Route: 048
     Dates: start: 202308, end: 202312
  2. MEKINIST [Suspect]
     Active Substance: TRAMETINIB DIMETHYL SULFOXIDE
     Indication: Lung neoplasm malignant
     Dosage: UNK
     Route: 048
     Dates: start: 202308, end: 202312

REACTIONS (4)
  - Cardiac dysfunction [Recovering/Resolving]
  - Oedema peripheral [Recovering/Resolving]
  - Lung neoplasm malignant [Unknown]
  - Malignant neoplasm progression [Unknown]

NARRATIVE: CASE EVENT DATE: 20231101
